FAERS Safety Report 19251895 (Version 3)
Quarter: 2021Q2

REPORT INFORMATION
  Report Type: Spontaneous
  Country: IR (occurrence: IR)
  Receive Date: 20210513
  Receipt Date: 20210526
  Transmission Date: 20210717
  Serious: Yes (Other)
  Sender: FDA-Public Use
  Company Number: IR-PFIZER INC-2021509837

PATIENT
  Age: 8 Year
  Sex: Female

DRUGS (7)
  1. VINCRISTINE [Suspect]
     Active Substance: VINCRISTINE
     Indication: B PRECURSOR TYPE ACUTE LEUKAEMIA
     Dosage: 1.5 MG/M2, 1X/DAY
     Route: 042
  2. L?ASPARAGINASE [Suspect]
     Active Substance: ASPARAGINASE
     Indication: B PRECURSOR TYPE ACUTE LEUKAEMIA
     Dosage: 6,000 UNITS/M2/DAY THRICE WEEKLY FOR 9 DOSES
     Route: 030
  3. CYTOSINE ARABINOSIDE [Suspect]
     Active Substance: CYTARABINE
     Indication: B PRECURSOR TYPE ACUTE LEUKAEMIA
     Dosage: 30 MG
     Route: 037
  4. DAUNORUBICIN HCL [Suspect]
     Active Substance: DAUNORUBICIN HYDROCHLORIDE
     Indication: B PRECURSOR TYPE ACUTE LEUKAEMIA
     Dosage: 25 MG/M2, 1X/DAY
     Route: 042
  5. METHYLPREDNISOLONE ACETATE. [Suspect]
     Active Substance: METHYLPREDNISOLONE ACETATE
     Indication: B PRECURSOR TYPE ACUTE LEUKAEMIA
     Dosage: 60 MG/M2, 1X/DAY
  6. METHOTREXATE. [Suspect]
     Active Substance: METHOTREXATE
     Indication: B PRECURSOR TYPE ACUTE LEUKAEMIA
     Dosage: 12.5 MG
  7. HYDROCORTISONE SODIUM SUCCINATE [Suspect]
     Active Substance: HYDROCORTISONE SODIUM SUCCINATE
     Indication: B PRECURSOR TYPE ACUTE LEUKAEMIA
     Dosage: 12.5 MG

REACTIONS (1)
  - Blood smear test abnormal [Recovered/Resolved]
